FAERS Safety Report 8034338-6 (Version None)
Quarter: 2012Q1

REPORT INFORMATION
  Report Type: 
  Country: None (occurrence: None)
  Receive Date: 20120110
  Receipt Date: 20120105
  Transmission Date: 20120608
  Serious: Yes (Hospitalization, Other)
  Sender: FDA-Public Use
  Company Number: PHHY2012AR001501

PATIENT
  Sex: Female

DRUGS (1)
  1. EXFORGE [Suspect]
     Dosage: UNK UKN, UNK
     Dates: end: 20111101

REACTIONS (8)
  - ERYTHEMA [None]
  - BRONCHOSPASM [None]
  - OEDEMA PERIPHERAL [None]
  - INFECTION [None]
  - CARDIAC DISORDER [None]
  - PNEUMONIA [None]
  - BLISTER [None]
  - FEELING ABNORMAL [None]
